FAERS Safety Report 6746563-2 (Version None)
Quarter: 2010Q2

REPORT INFORMATION
  Report Type: 
  Country: None (occurrence: None)
  Receive Date: 20100528
  Receipt Date: 20100521
  Transmission Date: 20101027
  Serious: Yes (Death)
  Sender: FDA-Public Use
  Company Number: US-EISAI INC.-E2090-01193-SPO-US

PATIENT
  Age: 61 Year
  Sex: Male

DRUGS (4)
  1. ZONEGRAN [Suspect]
     Indication: TRIGEMINAL NEURALGIA
     Dosage: UNKNOWN
     Route: 048
  2. ZONISAMIDE [Suspect]
     Indication: TRIGEMINAL NEURALGIA
     Route: 048
     Dates: start: 20061013
  3. NEURONTIN [Suspect]
     Indication: TRIGEMINAL NEURALGIA
     Route: 048
     Dates: start: 20060511
  4. TOPAMAX [Suspect]
     Indication: TRIGEMINAL NEURALGIA
     Route: 048
     Dates: start: 20080303

REACTIONS (1)
  - COMPLETED SUICIDE [None]
